FAERS Safety Report 4497278-5 (Version None)
Quarter: 2004Q4

REPORT INFORMATION
  Report Type: 
  Country: None (occurrence: None)
  Receive Date: 20041110
  Receipt Date: 20041103
  Transmission Date: 20050328
  Serious: Yes (Hospitalization)
  Sender: FDA-Public Use
  Company Number: US-JNJFOC-20041101325

PATIENT
  Sex: Female

DRUGS (13)
  1. DURAGESIC [Suspect]
     Route: 062
     Dates: start: 20040601
  2. DURAGESIC [Suspect]
     Route: 062
     Dates: start: 20040601
  3. DURAGESIC [Suspect]
     Route: 062
     Dates: start: 20040601
  4. ZOLOFT [Concomitant]
     Route: 049
  5. CENSTON [Concomitant]
     Route: 049
  6. LOZAL [Concomitant]
     Route: 049
  7. SPIROLACTONE [Concomitant]
     Route: 049
  8. SEROQUEL [Concomitant]
     Route: 049
  9. KLONAPIN [Concomitant]
     Route: 049
  10. AMBIEN [Concomitant]
     Route: 049
  11. TRAMADOL [Concomitant]
     Route: 049
  12. FLEXERIL [Concomitant]
     Dosage: AS NEEDED
     Route: 049
  13. FOSAMAX [Concomitant]
     Route: 049

REACTIONS (2)
  - CYST REMOVAL [None]
  - SPINAL LAMINECTOMY [None]
